FAERS Safety Report 5627249-4 (Version None)
Quarter: 2008Q1

REPORT INFORMATION
  Report Type: 
  Country: None (occurrence: None)
  Receive Date: 20080215
  Receipt Date: 20080204
  Transmission Date: 20080703
  Serious: No
  Sender: FDA-Public Use
  Company Number: US-BAYER-200812431NA

PATIENT
  Age: 34 Year
  Sex: Female
  Weight: 94 kg

DRUGS (1)
  1. YAZ [Suspect]
     Indication: CONTRACEPTION
     Route: 048
     Dates: start: 20070501, end: 20080101

REACTIONS (1)
  - PREGNANCY ON ORAL CONTRACEPTIVE [None]
